FAERS Safety Report 6934048-X (Version None)
Quarter: 2010Q3

REPORT INFORMATION
  Report Type: 
  Country: None (occurrence: None)
  Receive Date: 20100820
  Receipt Date: 20100812
  Transmission Date: 20110219
  Serious: Yes (Hospitalization, Disabling, Other)
  Sender: FDA-Public Use
  Company Number: AU-ABBOTT-10P-008-0652169-00

PATIENT
  Sex: Male
  Weight: 71 kg

DRUGS (11)
  1. HUMIRA [Suspect]
     Indication: RHEUMATOID ARTHRITIS
     Dates: start: 20090407, end: 20100615
  2. HUMIRA [Suspect]
     Indication: PSORIASIS
  3. METHOTREXATE [Concomitant]
     Indication: PRODUCT USED FOR UNKNOWN INDICATION
     Route: 048
  4. FOLIC ACID [Concomitant]
     Indication: PRODUCT USED FOR UNKNOWN INDICATION
     Route: 048
  5. PREDNISOLONE [Concomitant]
     Indication: PRODUCT USED FOR UNKNOWN INDICATION
  6. PREDNISONE [Concomitant]
     Indication: PRODUCT USED FOR UNKNOWN INDICATION
  7. METHOTREXATE [Concomitant]
  8. FOSAMAX [Concomitant]
     Indication: PRODUCT USED FOR UNKNOWN INDICATION
     Dosage: 2 TDS
  9. FOLIC ACID [Concomitant]
     Dosage: 1 TAB MON TO THUR
  10. VIT D [Concomitant]
     Indication: PRODUCT USED FOR UNKNOWN INDICATION
     Dosage: DAILY
  11. OSTEOPANADOL [Concomitant]
     Indication: PRODUCT USED FOR UNKNOWN INDICATION
     Dosage: 2 TABS 3 TIMES A DAY

REACTIONS (9)
  - BLISTER [None]
  - CELLULITIS [None]
  - HAIR DISORDER [None]
  - OEDEMA PERIPHERAL [None]
  - PUSTULAR PSORIASIS [None]
  - RASH [None]
  - RASH PAPULAR [None]
  - SKIN FISSURES [None]
  - WOUND INFECTION STAPHYLOCOCCAL [None]
